FAERS Safety Report 8224014-9 (Version None)
Quarter: 2012Q1

REPORT INFORMATION
  Report Type: 
  Country: None (occurrence: None)
  Receive Date: 20120321
  Receipt Date: 20120312
  Transmission Date: 20120608
  Serious: Yes (Other)
  Sender: FDA-Public Use
  Company Number: PHFR2012GB001718

PATIENT
  Sex: Female

DRUGS (1)
  1. TEGRETOL [Suspect]
     Indication: PARTIAL SEIZURES
     Dosage: 200 MG, BID
     Route: 048

REACTIONS (9)
  - ESCHERICHIA INFECTION [None]
  - DIZZINESS [None]
  - BALANCE DISORDER [None]
  - TINNITUS [None]
  - DIARRHOEA [None]
  - RASH [None]
  - MALAISE [None]
  - EAR PAIN [None]
  - TREMOR [None]
